FAERS Safety Report 19476832 (Version 6)
Quarter: 2022Q1

REPORT INFORMATION
  Report Type: Spontaneous
  Country: US (occurrence: US)
  Receive Date: 20210630
  Receipt Date: 20220314
  Transmission Date: 20220423
  Serious: No
  Sender: FDA-Public Use
  Company Number: US-PFIZER INC-2021412082

PATIENT
  Age: 61 Year
  Sex: Male
  Weight: 116.1 kg

DRUGS (5)
  1. INLYTA [Suspect]
     Active Substance: AXITINIB
     Indication: Renal cancer
     Dosage: UNK
  2. INLYTA [Suspect]
     Active Substance: AXITINIB
     Dosage: 5 MG, 2X/DAY (EVERY 12 HOURS)
     Route: 048
     Dates: start: 20210420
  3. IBUPROFEN [Concomitant]
     Active Substance: IBUPROFEN
     Dosage: 100 MG, UNK
  4. LEVOTHYROXINE [Concomitant]
     Active Substance: LEVOTHYROXINE
     Dosage: 100 UG, UNK
  5. WELLBUTRIN [Concomitant]
     Active Substance: BUPROPION HYDROCHLORIDE
     Dosage: UNK

REACTIONS (24)
  - Single functional kidney [Unknown]
  - Pain [Unknown]
  - Fatigue [Unknown]
  - Decreased appetite [Not Recovered/Not Resolved]
  - Oral pain [Recovered/Resolved]
  - Impaired healing [Unknown]
  - White blood cell count decreased [Unknown]
  - Platelet count decreased [Unknown]
  - Asthenia [Unknown]
  - Malaise [Unknown]
  - Feeling abnormal [Unknown]
  - Pain [Unknown]
  - Asthenia [Unknown]
  - Decreased appetite [Recovered/Resolved]
  - Weight decreased [Unknown]
  - Mood swings [Unknown]
  - Feeling abnormal [Unknown]
  - Loss of personal independence in daily activities [Unknown]
  - Glossitis [Unknown]
  - Muscle atrophy [Unknown]
  - Protein total decreased [Unknown]
  - Bone density decreased [Unknown]
  - Blood calcium increased [Unknown]
  - Gout [Unknown]
